FAERS Safety Report 4279492-7 (Version None)
Quarter: 2004Q1

REPORT INFORMATION
  Report Type: 
  Country: None (occurrence: None)
  Receive Date: 20040126
  Receipt Date: 20040126
  Transmission Date: 20041129
  Serious: Yes (Other)
  Sender: FDA-Public Use
  Company Number: None

PATIENT
  Age: 45 Year
  Sex: Female
  Weight: 81.6475 kg

DRUGS (2)
  1. PAROXETINE HCL [Suspect]
     Indication: ANXIETY
     Dosage: 20 MG SID ORAL
     Route: 048
     Dates: start: 20010402, end: 20031026
  2. PAROXETINE HCL [Suspect]
     Dosage: 10 MG SID ORAL
     Route: 048
     Dates: start: 20031027, end: 20040124

REACTIONS (4)
  - DRUG DEPENDENCE [None]
  - DRUG WITHDRAWAL SYNDROME [None]
  - MALAISE [None]
  - MEDICATION ERROR [None]
